FAERS Safety Report 8010813-5 (Version None)
Quarter: 2011Q4

REPORT INFORMATION
  Report Type: 
  Country: None (occurrence: None)
  Receive Date: 20111123
  Receipt Date: 20110810
  Transmission Date: 20120403
  Serious: No
  Sender: FDA-Public Use
  Company Number: 333447

PATIENT
  Age: 27 Year
  Sex: Female
  Weight: 104.3 kg

DRUGS (2)
  1. VICTOZA [Suspect]
     Indication: TYPE 2 DIABETES MELLITUS
     Dosage: 0.6 MG, QD, SUBCUTANEOUS
     Route: 058
     Dates: start: 20110803
  2. GLYBURIDE AND METFORMIN HCL (GLIBENCLAMIDE, METFORMIN HYDROCHLORIDE) [Concomitant]

REACTIONS (2)
  - ABDOMINAL PAIN [None]
  - CONSTIPATION [None]
